FAERS Safety Report 8784132 (Version 2)
Quarter: 2013Q4

REPORT INFORMATION
  Report Type: Spontaneous
  Country: US (occurrence: US)
  Receive Date: 20120913
  Receipt Date: 20131101
  Transmission Date: 20140711
  Serious: No
  Sender: FDA-Public Use
  Company Number: US-009507513-1208USA011344

PATIENT
  Sex: Male

DRUGS (1)
  1. INTRONA [Suspect]
     Indication: HEPATITIS C
     Dosage: EVERY MONDAY, WEDNESDAY AND FRIDAY
     Dates: start: 19790101, end: 19791231

REACTIONS (1)
  - Diarrhoea [Unknown]
